FAERS Safety Report 10163787 (Version 1)
Quarter: 2014Q2

REPORT INFORMATION
  Report Type: Spontaneous
  Country: CN (occurrence: CN)
  Receive Date: 20140509
  Receipt Date: 20140509
  Transmission Date: 20141212
  Serious: Yes (Death)
  Sender: FDA-Public Use
  Company Number: CN-ASTRAZENECA-2014SE31522

PATIENT
  Sex: 0

DRUGS (3)
  1. BETALOC ZOK [Suspect]
     Indication: HYPERTENSION
     Route: 015
     Dates: start: 2011
  2. IRBESARTAN AND HYDROCHLOROTHIAZIDE [Concomitant]
     Route: 015
     Dates: start: 2011
  3. NIFEDIPINE [Concomitant]
     Route: 015
     Dates: start: 2011

REACTIONS (1)
  - Foetal growth restriction [Fatal]
